FAERS Safety Report 4798283-1 (Version None)
Quarter: 2005Q4

REPORT INFORMATION
  Report Type: 
  Country: None (occurrence: None)
  Receive Date: 20051006
  Receipt Date: 20051006
  Transmission Date: 20060501
  Serious: Yes (Hospitalization)
  Sender: FDA-Public Use
  Company Number: None

PATIENT
  Age: 66 Year
  Sex: Male
  Weight: 75 kg

DRUGS (7)
  1. COLCHICINE [Suspect]
     Indication: GOUT
     Dosage: 0.6MG PO BID
     Route: 048
  2. DILTIAZEM [Concomitant]
  3. ASPIRIN [Concomitant]
  4. TENORMIN [Concomitant]
  5. PREDNISONE TAB [Concomitant]
  6. COLACE [Concomitant]
  7. INDOMETHACINE [Concomitant]

REACTIONS (6)
  - ERYTHEMA [None]
  - IMMOBILE [None]
  - JOINT RANGE OF MOTION DECREASED [None]
  - PAIN [None]
  - SWELLING [None]
  - TREATMENT NONCOMPLIANCE [None]
